FAERS Safety Report 17684068 (Version 1)
Quarter: 2020Q2

REPORT INFORMATION
  Report Type: Spontaneous
  Country: US (occurrence: US)
  Receive Date: 20200417
  Receipt Date: 20200417
  Transmission Date: 20200714
  Serious: Yes (Life-Threatening, Hospitalization)
  Sender: FDA-Public Use
  Company Number: None

PATIENT
  Age: 10 Month
  Sex: Female
  Weight: 7.5 kg

DRUGS (21)
  1. CEFRTRIAZONE [Concomitant]
     Dates: start: 20200405, end: 20200405
  2. SOTALOL. [Concomitant]
     Active Substance: SOTALOL
     Dates: start: 20200409, end: 20200409
  3. VANCOMYCIN [Concomitant]
     Active Substance: VANCOMYCIN
     Dates: start: 20200406, end: 20200407
  4. SULFAMETHOXAZOLE TRIMETHOPRIM [Concomitant]
     Active Substance: SULFAMETHOXAZOLE\TRIMETHOPRIM
     Dates: start: 20200408
  5. CEFRIAXONE [Concomitant]
     Active Substance: CEFTRIAXONE
     Dates: start: 20200403, end: 20200405
  6. MIDAZOLAM. [Concomitant]
     Active Substance: MIDAZOLAM
     Dates: start: 20200407, end: 20200407
  7. MYCOPHENOLATE [Concomitant]
     Active Substance: MYCOPHENOLIC ACID
     Dates: start: 20200409
  8. TACROLIMUS. [Concomitant]
     Active Substance: TACROLIMUS
  9. ZORTRESS [Suspect]
     Active Substance: EVEROLIMUS
     Indication: PROPHYLAXIS AGAINST TRANSPLANT REJECTION
     Dosage: ?          OTHER FREQUENCY:QAM;OTHER ROUTE:INTRADUODENAL?
     Dates: start: 20200228, end: 20200331
  10. METRONIDAZOLE. [Concomitant]
     Active Substance: METRONIDAZOLE
     Dates: start: 20200406
  11. CEFEPIME [Concomitant]
     Active Substance: CEFEPIME HYDROCHLORIDE
     Dates: start: 20200406
  12. IMMUNUE GLOBULIN [Concomitant]
     Dates: start: 20200405, end: 20200405
  13. SULFAMETHOXAZOLE TRIMETHOPRIM [Concomitant]
     Active Substance: SULFAMETHOXAZOLE\TRIMETHOPRIM
     Dates: start: 20200405, end: 20200405
  14. ZORTRESS [Suspect]
     Active Substance: EVEROLIMUS
     Indication: PROPHYLAXIS AGAINST TRANSPLANT REJECTION
     Dosage: ?          OTHER FREQUENCY:QPM;OTHER ROUTE:INTRADUODENAL?
     Dates: start: 20200228, end: 20200331
  15. AZITHROMYCIN ANHYDROUS. [Concomitant]
     Active Substance: AZITHROMYCIN ANHYDROUS
     Dates: start: 20200404, end: 20200407
  16. MORPHINE [Concomitant]
     Active Substance: MORPHINE
     Dates: start: 20200409, end: 20200409
  17. SOTALOL. [Concomitant]
     Active Substance: SOTALOL
     Dates: start: 20200409
  18. FATOTIDINE [Concomitant]
     Dates: start: 20200406
  19. ADENOSINE. [Concomitant]
     Active Substance: ADENOSINE
     Dates: start: 20200409, end: 20200409
  20. METHYLPREDNISOLONE. [Concomitant]
     Active Substance: METHYLPREDNISOLONE
     Dates: start: 20200408, end: 20200408
  21. PREDNISOLONE. [Concomitant]
     Active Substance: PREDNISOLONE
     Dates: start: 20200410

REACTIONS (7)
  - Human rhinovirus test positive [None]
  - Hypoxia [None]
  - Pulmonary congestion [None]
  - Rhinorrhoea [None]
  - Cough [None]
  - Pneumonia [None]
  - Tachycardia [None]

NARRATIVE: CASE EVENT DATE: 20200411
